FAERS Safety Report 10412731 (Version 2)
Quarter: 2014Q3

REPORT INFORMATION
  Report Type: Spontaneous
  Country: FR (occurrence: FR)
  Receive Date: 20140827
  Receipt Date: 20140903
  Transmission Date: 20150326
  Serious: Yes (Hospitalization, Other)
  Sender: FDA-Public Use
  Company Number: FR-PFIZER INC-2014232418

PATIENT
  Age: 54 Year
  Sex: Female

DRUGS (10)
  1. CORTANCYL [Suspect]
     Active Substance: PREDNISONE
     Dosage: MAXIMUM DOSE ESTIMATED TO 200 MG IN ONE SINGLE INTAKE
     Route: 048
     Dates: start: 20140703, end: 20140704
  2. XANAX [Suspect]
     Active Substance: ALPRAZOLAM
     Dosage: 0.5 MG, UNK
     Route: 048
     Dates: start: 20140703, end: 20140704
  3. CORTANCYL [Suspect]
     Active Substance: PREDNISONE
     Dosage: 20 MG, UNK
     Route: 048
  4. SEVREDOL [Suspect]
     Active Substance: MORPHINE
     Dosage: 10 MG, UNK
     Route: 048
     Dates: start: 20140703, end: 20140704
  5. ACUPAN [Suspect]
     Active Substance: NEFOPAM HYDROCHLORIDE
     Dosage: UNK
     Route: 048
     Dates: start: 20140703, end: 20140704
  6. ACUPAN [Suspect]
     Active Substance: NEFOPAM HYDROCHLORIDE
     Dosage: UNK
     Route: 048
  7. DOLIPRANE [Suspect]
     Active Substance: ACETAMINOPHEN
     Dosage: MAXIMUM DOSE ESTIMATED TO 4 G IN ONE SINGLE INTAKE
     Route: 048
     Dates: start: 20140703, end: 20140704
  8. DOLIPRANE [Suspect]
     Active Substance: ACETAMINOPHEN
     Dosage: 500 MG, UNK
     Route: 048
  9. XANAX [Suspect]
     Active Substance: ALPRAZOLAM
     Dosage: UNK
     Route: 048
  10. SEVREDOL [Suspect]
     Active Substance: MORPHINE
     Dosage: UNK

REACTIONS (5)
  - Coma [Recovered/Resolved]
  - Renal failure acute [Recovering/Resolving]
  - Poisoning deliberate [Recovering/Resolving]
  - Respiratory failure [Recovered/Resolved]
  - Disseminated intravascular coagulation [Recovered/Resolved]

NARRATIVE: CASE EVENT DATE: 20140704
